FAERS Safety Report 8794962 (Version 2)
Quarter: 2012Q4

REPORT INFORMATION
  Report Type: 
  Country: US (occurrence: US)
  Receive Date: 20120917
  Receipt Date: 20121015
  Transmission Date: 20130627
  Serious: Yes (Hospitalization, Other)
  Sender: FDA-Public Use
  Company Number: US-ASTRAZENECA-2012SE69155

PATIENT
  Age: 64 Year
  Sex: Female
  Weight: 70 kg

DRUGS (21)
  1. NEXIUM [Suspect]
     Dosage: 40 MG WITH BREAKFAST
     Route: 048
  2. LISINOPRIL + HYDROCHLOROTHIAZIDE [Suspect]
     Dosage: 10/12.5 DAILY
     Route: 048
  3. LISINOPRIL [Suspect]
     Route: 048
  4. TOPROL XL [Suspect]
     Indication: BLOOD PRESSURE ABNORMAL
     Route: 048
  5. TOPROL XL [Suspect]
     Indication: CARDIAC DISORDER
     Route: 048
  6. TOPROL XL [Suspect]
     Indication: BLOOD PRESSURE ABNORMAL
     Route: 048
  7. TOPROL XL [Suspect]
     Indication: CARDIAC DISORDER
     Route: 048
  8. TOPROL XL [Suspect]
     Indication: BLOOD PRESSURE ABNORMAL
     Route: 048
  9. TOPROL XL [Suspect]
     Indication: CARDIAC DISORDER
     Route: 048
  10. PRILOSEC OTC [Suspect]
     Route: 048
  11. PRILOSEC [Suspect]
     Route: 048
  12. CRESTOR [Suspect]
     Indication: BLOOD CHOLESTEROL INCREASED
     Route: 048
  13. ASPIRIN [Concomitant]
  14. DIOVAN [Concomitant]
     Indication: BLOOD PRESSURE ABNORMAL
  15. HYDROCHLOROTHIAZIDE [Concomitant]
     Indication: BLOOD PRESSURE ABNORMAL
  16. LEVAQUIN [Concomitant]
  17. MUCINEX [Concomitant]
  18. PRAVACHOL [Concomitant]
  19. PROTONIX [Concomitant]
  20. PLAVIX [Concomitant]
  21. FLORASTOR [Concomitant]
     Dosage: ONE TABLET DAILY

REACTIONS (46)
  - Chronic obstructive pulmonary disease [Unknown]
  - Tracheobronchitis [Unknown]
  - Gastritis [Unknown]
  - Gastrooesophageal reflux disease [Unknown]
  - Dizziness postural [Unknown]
  - Vertigo positional [Unknown]
  - Aortic aneurysm [Unknown]
  - Chest pain [Unknown]
  - Cough [Unknown]
  - Sputum discoloured [Unknown]
  - Haemoptysis [Unknown]
  - Bronchitis [Unknown]
  - Arteriosclerosis coronary artery [Unknown]
  - Peripheral vascular disorder [Unknown]
  - Carotid artery stenosis [Unknown]
  - Breast cancer recurrent [Unknown]
  - Breast cancer female [Unknown]
  - Ejection fraction abnormal [Unknown]
  - Bundle branch block left [Unknown]
  - Electrocardiogram T wave inversion [Unknown]
  - Nasal congestion [Unknown]
  - Nausea [Unknown]
  - Vomiting [Unknown]
  - Hypertension [Unknown]
  - Dyslipidaemia [Unknown]
  - Vitamin B12 deficiency [Unknown]
  - Hyperlipidaemia [Unknown]
  - Hiatus hernia [Unknown]
  - Pyrexia [Unknown]
  - Fatigue [Unknown]
  - Rhinorrhoea [Unknown]
  - Arthritis [Unknown]
  - Back pain [Unknown]
  - Neuropathy peripheral [Unknown]
  - Rhinorrhoea [Unknown]
  - Pain [Unknown]
  - Stress urinary incontinence [Unknown]
  - Kyphosis [Unknown]
  - Viral infection [Unknown]
  - Dehydration [Unknown]
  - Malaise [Unknown]
  - Malaise [Unknown]
  - Arthralgia [Unknown]
  - Diarrhoea [Unknown]
  - Abdominal pain [Unknown]
  - Drug dose omission [Unknown]
